FAERS Safety Report 8564461-9 (Version None)
Quarter: 2012Q3

REPORT INFORMATION
  Report Type: 
  Country: None (occurrence: None)
  Receive Date: 20120803
  Receipt Date: 20120726
  Transmission Date: 20120928
  Serious: Yes (Hospitalization)
  Sender: FDA-Public Use
  Company Number: ES-NOVOPROD-330529

PATIENT
  Age: 67 Year
  Sex: Male
  Weight: 68.5 kg

DRUGS (14)
  1. LEVOTHYROXINE SODIUM [Concomitant]
     Indication: HYPOTHYROIDISM
     Dosage: 100 UG, QD
     Dates: start: 20090525
  2. CYANOCOBALAMIN [Concomitant]
     Indication: VITAMIN B12 DEFICIENCY
     Dosage: 2.0 UG, QD
     Dates: start: 20080903
  3. TORSEMIDE [Concomitant]
     Indication: HYPERTENSION
     Dosage: 5 MG, QD
     Dates: start: 20080903
  4. DIOSMIN [Concomitant]
     Indication: VENOUS INSUFFICIENCY
     Dosage: 400 MG, QD
     Dates: start: 20080902
  5. VICTOZA [Suspect]
     Indication: TYPE 2 DIABETES MELLITUS
     Dosage: 1.8 MG, QD
     Route: 058
     Dates: start: 20110324, end: 20110603
  6. DILTIAZEM [Concomitant]
     Indication: HYPERTENSION
     Dosage: 240 MG, QD
     Dates: start: 20080902
  7. LANTUS [Concomitant]
     Indication: DIABETES MELLITUS
     Dosage: 14 IU, QD
     Dates: start: 20110421
  8. AUGMENTIN '125' [Concomitant]
     Indication: ABDOMINAL PAIN
     Dosage: 1 U, QD
     Dates: start: 20110603, end: 20110615
  9. GLICLAZIDE [Concomitant]
     Indication: DIABETES MELLITUS
     Dosage: 90 MG, QD
     Dates: start: 20100419
  10. SODIUM POLYSTYRENE SULFONATE [Concomitant]
     Indication: OSTEOPENIA
     Dosage: 30 G, QD
     Dates: start: 20090907
  11. FOLIC ACID [Concomitant]
     Indication: ANAEMIA
     Dosage: 400 UG, QD
     Dates: start: 20080903
  12. IRBESARTAN [Concomitant]
     Indication: HYPERTENSION
     Dosage: 300 MG, QD
     Dates: start: 20080903
  13. PRAVASTATIN [Concomitant]
     Indication: DYSLIPIDAEMIA
     Dosage: 40 MG, QD
     Dates: start: 20080828
  14. HIDROFEROL [Concomitant]
     Indication: OSTEOPENIA
     Dosage: 0.2 MG, QD
     Dates: start: 20101213

REACTIONS (1)
  - DUODENAL ULCER [None]
